FAERS Safety Report 6600886-6 (Version None)
Quarter: 2010Q1

REPORT INFORMATION
  Report Type: 
  Country: None (occurrence: None)
  Receive Date: 20100225
  Receipt Date: 20100205
  Transmission Date: 20100710
  Serious: No
  Sender: FDA-Public Use
  Company Number: A0839441A

PATIENT
  Age: 31 Year
  Sex: Male

DRUGS (2)
  1. LAMICTAL CD [Suspect]
     Indication: DEPRESSION
     Dosage: 50MG PER DAY
     Route: 048
     Dates: start: 20091225
  2. M.V.I. [Concomitant]

REACTIONS (3)
  - DRUG HYPERSENSITIVITY [None]
  - RASH GENERALISED [None]
  - RASH PAPULAR [None]
